FAERS Safety Report 17895140 (Version 2)
Quarter: 2020Q3

REPORT INFORMATION
  Report Type: Spontaneous
  Country: US (occurrence: US)
  Receive Date: 20200615
  Receipt Date: 20200702
  Transmission Date: 20201103
  Serious: No
  Sender: FDA-Public Use
  Company Number: US-PFIZER INC-2020230926

PATIENT
  Age: 58 Year
  Sex: Male
  Weight: 93.89 kg

DRUGS (8)
  1. FUROSEMIDE. [Concomitant]
     Active Substance: FUROSEMIDE
     Indication: DIURETIC THERAPY
     Dosage: 20 MG, 1X/DAY
     Route: 048
     Dates: start: 2010
  2. VENLAFAXINE [Concomitant]
     Active Substance: VENLAFAXINE HYDROCHLORIDE
     Indication: SEIZURE
     Dosage: 225 MG, DAILY (TWO PILL IN THE MORNING AND ONE PILL AT BEDTIME)
     Route: 048
     Dates: start: 2010
  3. GABAPENTIN. [Concomitant]
     Active Substance: GABAPENTIN
     Indication: HEADACHE
     Dosage: 600 MG ( TWO? THREE TIMES A DAY BY MOUTH)
     Route: 048
     Dates: start: 2010
  4. CARBAMAZEPINE. [Concomitant]
     Active Substance: CARBAMAZEPINE
     Indication: SEIZURE
     Dosage: 900 MG, DAILY (ONE PILL IN THE MORNING TWO PILLS AT BEDTIME )
     Route: 048
     Dates: start: 2010
  5. MELOXICAM. [Concomitant]
     Active Substance: MELOXICAM
     Indication: SEIZURE
     Dosage: 15 MG, 1X/DAY
     Route: 048
     Dates: start: 2010
  6. FLOVENT [Concomitant]
     Active Substance: FLUTICASONE PROPIONATE
     Indication: ASTHMA
     Dosage: 50 MG, 2X/DAY
     Route: 048
     Dates: start: 2010
  7. SILDENAFIL CITRATE. [Suspect]
     Active Substance: SILDENAFIL CITRATE
     Indication: SEXUAL DYSFUNCTION
     Dosage: 100 MG, AS NEEDED
     Route: 048
     Dates: start: 202002
  8. SPIRONOLACTONE. [Concomitant]
     Active Substance: SPIRONOLACTONE
     Indication: DIURETIC THERAPY
     Dosage: 25 MG, 1X/DAY
     Route: 048

REACTIONS (1)
  - Drug ineffective [Unknown]

NARRATIVE: CASE EVENT DATE: 202002
